FAERS Safety Report 7493368-3 (Version None)
Quarter: 2011Q2

REPORT INFORMATION
  Report Type: 
  Country: None (occurrence: None)
  Receive Date: 20110520
  Receipt Date: 20110506
  Transmission Date: 20111010
  Serious: Yes (Hospitalization)
  Sender: FDA-Public Use
  Company Number: FR-MYLANLABS-2011S1009391

PATIENT
  Sex: Female

DRUGS (6)
  1. CISPLATIN [Suspect]
     Dates: start: 20110401
  2. ETOPOSIDE [Suspect]
     Dates: start: 20110401
  3. ETOPOSIDE [Suspect]
     Indication: SMALL CELL LUNG CANCER STAGE UNSPECIFIED
     Dates: start: 20110101
  4. CISPLATIN [Suspect]
     Dates: start: 20110101
  5. ETOPOSIDE [Suspect]
     Dates: start: 20110101
  6. CISPLATIN [Suspect]
     Indication: SMALL CELL LUNG CANCER STAGE UNSPECIFIED
     Dates: start: 20110101

REACTIONS (2)
  - BONE MARROW FAILURE [None]
  - CYTOLYTIC HEPATITIS [None]
